FAERS Safety Report 20463095 (Version 2)
Quarter: 2022Q1

REPORT INFORMATION
  Report Type: Spontaneous
  Country: AU (occurrence: AU)
  Receive Date: 20220211
  Receipt Date: 20220310
  Transmission Date: 20220423
  Serious: Yes (Hospitalization)
  Sender: FDA-Public Use
  Company Number: AU-Gedeon Richter Plc.-2022_GR_000788

PATIENT
  Sex: Male

DRUGS (1)
  1. CARIPRAZINE HYDROCHLORIDE [Suspect]
     Active Substance: CARIPRAZINE HYDROCHLORIDE
     Indication: Negative symptoms in schizophrenia
     Dosage: 1.5 MG

REACTIONS (1)
  - Rebound psychosis [Unknown]
